FAERS Safety Report 8424213-7 (Version None)
Quarter: 2012Q2

REPORT INFORMATION
  Report Type: 
  Country: None (occurrence: None)
  Receive Date: 20120608
  Receipt Date: 20120223
  Transmission Date: 20120825
  Serious: No
  Sender: FDA-Public Use
  Company Number: US-ASTRAZENECA-2012SE05887

PATIENT
  Age: 40 Year
  Sex: Female

DRUGS (4)
  1. PULMICORT FLEXHALER [Suspect]
     Dosage: TWO PUFFS DAILY
     Route: 055
     Dates: start: 20120109
  2. VENTOLIN [Concomitant]
  3. PULMICORT FLEXHALER [Suspect]
     Indication: ASTHMA
     Dosage: TWO PUFFS TWO TIMES A DAY
     Route: 055
  4. PULMICORT FLEXHALER [Suspect]
     Dosage: 2 PUFFS IN THE MORNING AND 2 PUFFS AT A LATER TIME OF THE DAY
     Route: 055

REACTIONS (3)
  - INCORRECT DOSE ADMINISTERED [None]
  - THYROID DISORDER [None]
  - DYSPNOEA [None]
